FAERS Safety Report 6032899-X (Version None)
Quarter: 2009Q1

REPORT INFORMATION
  Report Type: 
  Country: None (occurrence: None)
  Receive Date: 20090109
  Receipt Date: 20081223
  Transmission Date: 20090719
  Serious: Yes (Other)
  Sender: FDA-Public Use
  Company Number: FR-BAYER-200910077GPV

PATIENT
  Age: 31 Year
  Sex: Female

DRUGS (3)
  1. NIFEDIPINE [Suspect]
     Indication: TOCOLYSIS
     Route: 065
  2. NICARDIPINE HYDROCHLORIDE [Suspect]
     Indication: TOCOLYSIS
     Route: 065
  3. ATOSIBAN [Concomitant]
     Indication: TOCOLYSIS
     Route: 065

REACTIONS (3)
  - ACUTE PULMONARY OEDEMA [None]
  - LEFT VENTRICULAR DYSFUNCTION [None]
  - PLEURAL EFFUSION [None]
